FAERS Safety Report 8950614 (Version 1)
Quarter: 2012Q4

REPORT INFORMATION
  Report Type: Spontaneous
  Country: US (occurrence: None)
  Receive Date: 20121204
  Receipt Date: 20121204
  Transmission Date: 20130627
  Serious: No
  Sender: FDA-Public Use
  Company Number: None

PATIENT
  Sex: Female

DRUGS (1)
  1. VITAFUSSION PRENATAL QUMMINES [Suspect]

REACTIONS (3)
  - Exposure during pregnancy [None]
  - Abortion spontaneous [None]
  - Blighted ovum [None]
